FAERS Safety Report 9233152 (Version 1)
Quarter: 2013Q2

REPORT INFORMATION
  Report Type: Spontaneous
  Country: US (occurrence: None)
  Receive Date: 20130415
  Receipt Date: 20130415
  Transmission Date: 20140414
  Serious: Yes (Other)
  Sender: FDA-Public Use
  Company Number: None

PATIENT
  Age: 60 Year
  Sex: Female
  Weight: 58.3 kg

DRUGS (2)
  1. PROHANCE [Suspect]
     Indication: NUCLEAR MAGNETIC RESONANCE IMAGING
     Dosage: 12 ML (6 MMOL) IV X2 DOSES
     Route: 042
     Dates: start: 20121226
  2. LEVETIRACETAM [Concomitant]

REACTIONS (3)
  - Urticaria [None]
  - Memory impairment [None]
  - Sneezing [None]
